FAERS Safety Report 7687583-3 (Version None)
Quarter: 2011Q3

REPORT INFORMATION
  Report Type: 
  Country: None (occurrence: None)
  Receive Date: 20110811
  Receipt Date: 20110731
  Transmission Date: 20111222
  Serious: Yes (Other)
  Sender: FDA-Public Use
  Company Number: THQ2011A04417

PATIENT
  Age: 75 Year
  Sex: Female

DRUGS (3)
  1. ACTOS [Suspect]
     Indication: TYPE 2 DIABETES MELLITUS
     Dosage: 45 MG (1 D) PER ORAL
     Route: 048
     Dates: start: 20090101
  2. METFORMIN HYDROCHLORIDE [Concomitant]
  3. GLICLAZIDE [Concomitant]

REACTIONS (1)
  - BLADDER PAPILLOMA [None]
